FAERS Safety Report 14358317 (Version 2)
Quarter: 2018Q2

REPORT INFORMATION
  Report Type: Spontaneous
  Country: US (occurrence: US)
  Receive Date: 20180105
  Receipt Date: 20180404
  Transmission Date: 20180711
  Serious: No
  Sender: FDA-Public Use
  Company Number: US-SA-2017SA203404

PATIENT
  Age: 64 Year
  Sex: Male

DRUGS (2)
  1. DUPIXENT [Suspect]
     Active Substance: DUPILUMAB
     Indication: DERMATITIS ATOPIC
     Route: 058
     Dates: start: 20170929
  2. MEDROL [Concomitant]
     Active Substance: METHYLPREDNISOLONE
     Route: 065

REACTIONS (5)
  - Malaise [Unknown]
  - Pyrexia [Unknown]
  - Headache [Unknown]
  - Arthralgia [Unknown]
  - Hypersensitivity [Unknown]

NARRATIVE: CASE EVENT DATE: 20171015
